FAERS Safety Report 6877560-4 (Version None)
Quarter: 2010Q3

REPORT INFORMATION
  Report Type: 
  Country: None (occurrence: None)
  Receive Date: 20100727
  Receipt Date: 20100303
  Transmission Date: 20110219
  Serious: No
  Sender: FDA-Public Use
  Company Number: US-ABBOTT-10P-163-0630557-00

PATIENT
  Age: 47 Year
  Sex: Female

DRUGS (4)
  1. SYNTHROID [Suspect]
     Indication: HYPOTHYROIDISM
     Route: 048
     Dates: start: 19960101
  2. SYNTHROID [Suspect]
     Route: 048
  3. AMLODIPINE [Concomitant]
     Indication: HYPERTENSION
  4. HEMATINIC VITAMIN [Concomitant]
     Indication: MINERAL SUPPLEMENTATION

REACTIONS (1)
  - THYROID FUNCTION TEST ABNORMAL [None]
